FAERS Safety Report 16470313 (Version 1)
Quarter: 2019Q2

REPORT INFORMATION
  Report Type: Report from Study
  Country: None (occurrence: GB)
  Receive Date: 20190624
  Receipt Date: 20190624
  Transmission Date: 20190711
  Serious: Yes (Other)
  Sender: FDA-Public Use
  Company Number: GB-ABBVIE-19S-167-2830528-00

PATIENT
  Sex: Female

DRUGS (1)
  1. DUODOPA [Suspect]
     Active Substance: CARBIDOPA\LEVODOPA
     Indication: PARKINSON^S DISEASE
     Dosage: 100 ML TWO CASSETTES PER DAY??5MG/1ML??20MG/1ML
     Route: 050

REACTIONS (2)
  - Cerebrovascular accident [Recovering/Resolving]
  - Hemiparesis [Not Recovered/Not Resolved]

NARRATIVE: CASE EVENT DATE: 2019
